FAERS Safety Report 15277536 (Version 2)
Quarter: 2018Q4

REPORT INFORMATION
  Report Type: Spontaneous
  Country: BR (occurrence: BR)
  Receive Date: 20180814
  Receipt Date: 20181005
  Transmission Date: 20190204
  Serious: Yes (Hospitalization)
  Sender: FDA-Public Use
  Company Number: BR-SA-2018SA213900

PATIENT
  Age: 35 Year
  Sex: Female
  Weight: 64 kg

DRUGS (2)
  1. CLEXANE [Suspect]
     Active Substance: ENOXAPARIN SODIUM
     Indication: THROMBOSIS
     Dosage: 1 AMPOULE DAILY AT THE NIGHT
     Route: 030
     Dates: start: 20180718
  2. FOLIC ACID. [Concomitant]
     Active Substance: FOLIC ACID
     Indication: SUPPLEMENTATION THERAPY
     Dosage: 1 DF, QD
     Route: 048
     Dates: start: 201804

REACTIONS (6)
  - Injection site pain [Not Recovered/Not Resolved]
  - Adverse event [Unknown]
  - Product use issue [Unknown]
  - Exposure during pregnancy [Unknown]
  - Injection site discolouration [Not Recovered/Not Resolved]
  - Product packaging issue [Unknown]

NARRATIVE: CASE EVENT DATE: 20180801
